FAERS Safety Report 23272432 (Version 1)
Quarter: 2023Q4

REPORT INFORMATION
  Report Type: Spontaneous
  Country: US (occurrence: US)
  Receive Date: 20231207
  Receipt Date: 20231207
  Transmission Date: 20240110
  Serious: Yes (Life-Threatening, Hospitalization, Other)
  Sender: FDA-Public Use
  Company Number: US-SUN PHARMACEUTICAL INDUSTRIES LTD-2023R1-422364

PATIENT
  Age: 43 Year
  Sex: Male

DRUGS (1)
  1. OCTREOTIDE [Suspect]
     Active Substance: OCTREOTIDE
     Indication: Diabetes mellitus
     Route: 065

REACTIONS (2)
  - Hyperkalaemia [Unknown]
  - Therapeutic response decreased [Unknown]
